FAERS Safety Report 6665857-2 (Version None)
Quarter: 2010Q2

REPORT INFORMATION
  Report Type: 
  Country: None (occurrence: None)
  Receive Date: 20100402
  Receipt Date: 20100323
  Transmission Date: 20101027
  Serious: Yes (Hospitalization)
  Sender: FDA-Public Use
  Company Number: US-PFIZER INC-2010037599

PATIENT
  Sex: Female
  Weight: 142 kg

DRUGS (3)
  1. AZULFIDINE [Suspect]
     Dosage: UNK
     Dates: start: 20090303, end: 20090712
  2. FOLIC ACID [Concomitant]
  3. KLONOPIN [Concomitant]

REACTIONS (15)
  - CHILLS [None]
  - CHOLANGITIS SCLEROSING [None]
  - DRUG HYPERSENSITIVITY [None]
  - HAEMANGIOMA OF LIVER [None]
  - HAEMATOCRIT DECREASED [None]
  - HAEMOGLOBIN DECREASED [None]
  - HEADACHE [None]
  - HEPATITIS [None]
  - HYPERHIDROSIS [None]
  - MENINGITIS [None]
  - OVARIAN CYST [None]
  - PNEUMONIA [None]
  - PYREXIA [None]
  - SMALL INTESTINAL OBSTRUCTION [None]
  - VISION BLURRED [None]
